FAERS Safety Report 18389927 (Version 1)
Quarter: 2020Q4

REPORT INFORMATION
  Report Type: Spontaneous
  Country: US (occurrence: US)
  Receive Date: 20201015
  Receipt Date: 20201015
  Transmission Date: 20210114
  Serious: No
  Sender: FDA-Public Use
  Company Number: US-OPTINOSE US, INC-2020OPT000570

PATIENT
  Age: 63 Year
  Sex: Female

DRUGS (3)
  1. RHINOCORT [Concomitant]
     Active Substance: BUDESONIDE
     Indication: NASAL POLYPS
     Route: 065
  2. XHANCE [Suspect]
     Active Substance: FLUTICASONE PROPIONATE
     Indication: NASAL POLYPS
     Route: 045
     Dates: start: 20200611
  3. XHANCE [Suspect]
     Active Substance: FLUTICASONE PROPIONATE
     Route: 045

REACTIONS (4)
  - Device breakage [Unknown]
  - Product dose omission issue [Unknown]
  - Skin laceration [Unknown]
  - Wound haemorrhage [Recovered/Resolved]

NARRATIVE: CASE EVENT DATE: 20200717
